FAERS Safety Report 14573194 (Version 2)
Quarter: 2018Q1

REPORT INFORMATION
  Report Type: Spontaneous
  Country: CA (occurrence: CA)
  Receive Date: 20180226
  Receipt Date: 20180307
  Transmission Date: 20180509
  Serious: No
  Sender: FDA-Public Use
  Company Number: CA-PFIZER INC-2017528282

PATIENT
  Age: 33 Year
  Sex: Male

DRUGS (4)
  1. SULFASALAZINE. [Suspect]
     Active Substance: SULFASALAZINE
     Dosage: 1 G, 2X/DAY
     Route: 065
     Dates: start: 201709
  2. INFLECTRA [Suspect]
     Active Substance: INFLIXIMAB-DYYB
     Indication: PSORIATIC ARTHROPATHY
     Dosage: 500 MG, CYCLIC, (Q 0, 2, 6 WEEKS, THEN EVERY 8 WEEKS)
     Route: 042
  3. INFLECTRA [Suspect]
     Active Substance: INFLIXIMAB-DYYB
     Dosage: 500 MG, CYCLIC, (Q 0, 2, 6 WEEKS, THEN EVERY 8 WEEKS)
     Route: 042
  4. METHOTREXATE SODIUM. [Suspect]
     Active Substance: METHOTREXATE SODIUM
     Dosage: 25 MG, UNK
     Route: 065
     Dates: start: 201709

REACTIONS (3)
  - Nasopharyngitis [Unknown]
  - Headache [Not Recovered/Not Resolved]
  - Drug effect incomplete [Unknown]

NARRATIVE: CASE EVENT DATE: 20180123
